FAERS Safety Report 26069336 (Version 1)
Quarter: 2025Q4

REPORT INFORMATION
  Report Type: Spontaneous
  Country: US (occurrence: US)
  Receive Date: 20251120
  Receipt Date: 20251120
  Transmission Date: 20260119
  Serious: No
  Sender: AMNEAL
  Company Number: US-AMNEAL PHARMACEUTICALS-2025-AMRX-03297

PATIENT
  Sex: Female

DRUGS (1)
  1. CREXONT [Suspect]
     Active Substance: CARBIDOPA\LEVODOPA
     Indication: Parkinson^s disease
     Dosage: 01 CAPSULES (52.5/210 MG) , 4X/DAY
     Route: 048

REACTIONS (2)
  - Product use issue [Unknown]
  - Prescription drug used without a prescription [Unknown]
